FAERS Safety Report 6840813-X (Version None)
Quarter: 2010Q3

REPORT INFORMATION
  Report Type: 
  Country: None (occurrence: None)
  Receive Date: 20100714
  Receipt Date: 20100707
  Transmission Date: 20110219
  Serious: Yes (Hospitalization)
  Sender: FDA-Public Use
  Company Number: AU-SOLVAY-00309006761

PATIENT
  Age: 16989 Day
  Sex: Female

DRUGS (2)
  1. CREON [Suspect]
     Indication: PRODUCT USED FOR UNKNOWN INDICATION
     Dosage: DAILY DOSE:  APPROXIMATELY 20 CAPSULES, CREON (10 000 IU) 2-5 CAPSULES WITH EACH MEAL
     Route: 048
     Dates: start: 20080101
  2. CREON [Suspect]
     Dosage: DAILY DOSE:  APPROXIMATELY 20 CAPSULES, CREON (10 000 IU) 2-5 CAPSULES WITH EACH MEAL
     Route: 048
     Dates: start: 20080101

REACTIONS (2)
  - DRUG INEFFECTIVE [None]
  - PANCREATITIS [None]
